FAERS Safety Report 4896314-1 (Version None)
Quarter: 2006Q1

REPORT INFORMATION
  Report Type: 
  Country: None (occurrence: None)
  Receive Date: 20060126
  Receipt Date: 20060113
  Transmission Date: 20060701
  Serious: Yes (Disabling)
  Sender: FDA-Public Use
  Company Number: 230056M05FRA

PATIENT
  Age: 41 Year
  Sex: Female
  Weight: 52 kg

DRUGS (2)
  1. REBIF [Suspect]
     Indication: MULTIPLE SCLEROSIS
     Dosage: 22 MCG, 3 IN 1 WEEKS;  44 MCG, 3 IN 1 WEEKS
     Dates: end: 20051006
  2. REBIF [Suspect]
     Indication: MULTIPLE SCLEROSIS
     Dosage: 22 MCG, 3 IN 1 WEEKS;  44 MCG, 3 IN 1 WEEKS
     Dates: start: 20030801

REACTIONS (4)
  - ABASIA [None]
  - FASCIITIS [None]
  - GAIT DISTURBANCE [None]
  - INJECTION SITE CELLULITIS [None]
